FAERS Safety Report 21217508 (Version 2)
Quarter: 2022Q4

REPORT INFORMATION
  Report Type: Report from Study
  Country: US (occurrence: US)
  Receive Date: 20220816
  Receipt Date: 20221026
  Transmission Date: 20230112
  Serious: Yes (Death)
  Sender: FDA-Public Use
  Company Number: US-NOVARTISPH-NVSC2022US184486

PATIENT
  Age: 76 Year
  Sex: Female
  Weight: 39.92 kg

DRUGS (5)
  1. KISQALI [Suspect]
     Active Substance: RIBOCICLIB
     Indication: Hormone receptor positive HER2 negative breast cancer
     Dosage: 400 MG, DAILY
     Route: 048
     Dates: start: 20200821, end: 20220727
  2. ARIMIDEX [Concomitant]
     Active Substance: ANASTROZOLE
     Indication: Breast cancer
     Dosage: 1 MG, DAILY
     Route: 048
     Dates: start: 20121010, end: 20220727
  3. JENTADUETO [Concomitant]
     Active Substance: LINAGLIPTIN\METFORMIN HYDROCHLORIDE
     Indication: Diabetes mellitus
     Dosage: 2.5MG/1000MG, DAILY
     Route: 048
     Dates: start: 20151026, end: 20220727
  4. LISINOPRIL [Concomitant]
     Active Substance: LISINOPRIL
     Indication: Hypertension
     Dosage: 10 MG, DAILY
     Route: 048
     Dates: start: 20121010, end: 20220727
  5. VERAPAMIL [Concomitant]
     Active Substance: VERAPAMIL HYDROCHLORIDE
     Indication: Hypertension
     Dosage: 240 MG, DAILY, ER
     Route: 048
     Dates: start: 20121010, end: 20220727

REACTIONS (1)
  - Death [Fatal]

NARRATIVE: CASE EVENT DATE: 20220728
